FAERS Safety Report 9220248 (Version 1)
Quarter: 2013Q2

REPORT INFORMATION
  Report Type: Spontaneous
  Country: US (occurrence: US)
  Receive Date: 20130409
  Receipt Date: 20130409
  Transmission Date: 20140414
  Serious: Yes (Hospitalization)
  Sender: FDA-Public Use
  Company Number: CHPA2013US005798

PATIENT
  Age: 86 Year
  Sex: Male

DRUGS (1)
  1. EXCEDRIN EXTRA STRENGTH [Suspect]
     Indication: FATIGUE MANAGEMENT
     Dosage: 2 DF, UNK
     Route: 048

REACTIONS (4)
  - Large intestine perforation [Recovered/Resolved]
  - Asthenia [Unknown]
  - Therapeutic response unexpected [Unknown]
  - Off label use [Unknown]
